FAERS Safety Report 4665516-1 (Version None)
Quarter: 2005Q2

REPORT INFORMATION
  Report Type: 
  Country: None (occurrence: None)
  Receive Date: 20050517
  Receipt Date: 20050502
  Transmission Date: 20051028
  Serious: Yes (Hospitalization, Other)
  Sender: FDA-Public Use
  Company Number: USA050597056

PATIENT
  Age: 68 Year
  Sex: Female

DRUGS (1)
  1. FORTEO [Suspect]
     Indication: OSTEOARTHRITIS
     Dates: start: 20041101

REACTIONS (7)
  - CYSTITIS [None]
  - HAEMATEMESIS [None]
  - KIDNEY INFECTION [None]
  - OESOPHAGEAL PAIN [None]
  - OESOPHAGEAL RUPTURE [None]
  - PHARMACEUTICAL PRODUCT COMPLAINT [None]
  - SEPSIS [None]
